FAERS Safety Report 19872639 (Version 1)
Quarter: 2021Q3

REPORT INFORMATION
  Report Type: Report from Study
  Country: US (occurrence: US)
  Receive Date: 20210923
  Receipt Date: 20210923
  Transmission Date: 20211014
  Serious: Yes (Other)
  Sender: FDA-Public Use
  Company Number: US-TEVA-2021-US-1946305

PATIENT
  Sex: Female

DRUGS (1)
  1. COPAXONE [Suspect]
     Active Substance: GLATIRAMER ACETATE
     Dosage: FORM STRENGTH?UNKNOWN
     Route: 065

REACTIONS (10)
  - Injection site scar [Unknown]
  - Flushing [Unknown]
  - Injection site haemorrhage [Unknown]
  - Chest pain [Unknown]
  - Diarrhoea [Unknown]
  - Immediate post-injection reaction [Unknown]
  - Loss of consciousness [Unknown]
  - Nausea [Unknown]
  - Heart rate abnormal [Unknown]
  - Dyspnoea [Unknown]
